FAERS Safety Report 21635140 (Version 1)
Quarter: 2022Q4

REPORT INFORMATION
  Report Type: Spontaneous
  Country: PL (occurrence: PL)
  Receive Date: 20221123
  Receipt Date: 20221123
  Transmission Date: 20230112
  Serious: Yes (Hospitalization, Other)
  Sender: FDA-Public Use
  Company Number: PL-ELI_LILLY_AND_COMPANY-PL202211007830

PATIENT
  Age: 64 Year
  Sex: Female

DRUGS (4)
  1. ABEMACICLIB [Suspect]
     Active Substance: ABEMACICLIB
     Indication: Invasive lobular breast carcinoma
     Dosage: UNK UNK, UNKNOWN
     Route: 065
     Dates: start: 20220210
  2. ABEMACICLIB [Suspect]
     Active Substance: ABEMACICLIB
     Dosage: UNK UNK, UNKNOWN
     Route: 065
     Dates: end: 20221024
  3. FULVESTRANT [Concomitant]
     Active Substance: FULVESTRANT
     Indication: Invasive lobular breast carcinoma
     Dosage: UNK
     Dates: start: 20220210
  4. FULVESTRANT [Concomitant]
     Active Substance: FULVESTRANT
     Dosage: UNK UNK, UNKNOWN
     Route: 065
     Dates: end: 20221024

REACTIONS (7)
  - Syncope [Unknown]
  - Glomerular filtration rate decreased [Unknown]
  - Dehydration [Unknown]
  - Vomiting [Unknown]
  - Blood creatinine increased [Unknown]
  - Blood urea increased [Unknown]
  - Diarrhoea [Recovered/Resolved]
